FAERS Safety Report 25850740 (Version 2)
Quarter: 2025Q4

REPORT INFORMATION
  Report Type: Spontaneous
  Country: US (occurrence: US)
  Receive Date: 20250926
  Receipt Date: 20251006
  Transmission Date: 20260118
  Serious: No
  Sender: AMGEN
  Company Number: US-AMGEN-USASP2025190090

PATIENT
  Age: 75 Year
  Sex: Female

DRUGS (1)
  1. EVENITY [Suspect]
     Active Substance: ROMOSOZUMAB-AQQG
     Indication: Product used for unknown indication
     Dosage: UNK
     Route: 065
     Dates: start: 20250528

REACTIONS (5)
  - Back pain [Recovering/Resolving]
  - Arthralgia [Unknown]
  - Musculoskeletal stiffness [Unknown]
  - Tenderness [Unknown]
  - Headache [Unknown]

NARRATIVE: CASE EVENT DATE: 20250101
